FAERS Safety Report 10529730 (Version 3)
Quarter: 2014Q4

REPORT INFORMATION
  Report Type: Spontaneous
  Country: AU (occurrence: AU)
  Receive Date: 20141021
  Receipt Date: 20141222
  Transmission Date: 20150528
  Serious: Yes (Hospitalization, Other)
  Sender: FDA-Public Use
  Company Number: AU-ABBVIE-14K-008-1268980-00

PATIENT
  Age: 21 Year
  Sex: Female
  Weight: 54 kg

DRUGS (2)
  1. HUMIRA [Suspect]
     Active Substance: ADALIMUMAB
     Indication: CROHN^S DISEASE
     Route: 058
     Dates: start: 20140610, end: 201408
  2. HUMIRA [Suspect]
     Active Substance: ADALIMUMAB
     Indication: INTESTINAL FISTULA
     Route: 058
     Dates: start: 201412

REACTIONS (5)
  - Lymphadenopathy [Unknown]
  - Staphylococcal infection [Recovered/Resolved]
  - Staphylococcal infection [Recovering/Resolving]
  - Cellulitis [Unknown]
  - Groin abscess [Recovering/Resolving]

NARRATIVE: CASE EVENT DATE: 2014
